FAERS Safety Report 4522989-2 (Version None)
Quarter: 2004Q4

REPORT INFORMATION
  Report Type: 
  Country: None (occurrence: None)
  Receive Date: 20041208
  Receipt Date: 20041124
  Transmission Date: 20050328
  Serious: No
  Sender: FDA-Public Use
  Company Number: 04P-028-0282004-00

PATIENT
  Sex: 0

DRUGS (4)
  1. SEVOFLURANE (ULTANE LIQUID FOR INHALATION) [Suspect]
     Indication: INDUCTION OF ANAESTHESIA
     Dosage: 8%, ONCE, INHALATION
     Route: 055
  2. SUFENTANIL CITRATE [Suspect]
     Indication: ANAESTHESIA
     Dosage: 0.1 MCG/KG, ONCE
  3. NITROUS OXIDE [Concomitant]
  4. OXYGEN [Concomitant]

REACTIONS (2)
  - BRADYCARDIA [None]
  - CARDIAC ARREST [None]
